FAERS Safety Report 4825786-3 (Version None)
Quarter: 2005Q4

REPORT INFORMATION
  Report Type: 
  Country: None (occurrence: None)
  Receive Date: 20051111
  Receipt Date: 20051108
  Transmission Date: 20060501
  Serious: Yes (Other)
  Sender: FDA-Public Use
  Company Number: US-GLAXOSMITHKLINE-A0581415A

PATIENT
  Age: 33 Year
  Sex: Male

DRUGS (3)
  1. ESKALITH CR [Suspect]
     Indication: BIPOLAR I DISORDER
     Route: 048
     Dates: end: 20051001
  2. LITHIUM CARBONATE [Suspect]
     Indication: BIPOLAR I DISORDER
     Dosage: 900MG TWICE PER DAY
     Route: 048
     Dates: start: 20051001
  3. NO CONCURRENT MEDICATION [Concomitant]

REACTIONS (4)
  - AGGRESSION [None]
  - DIARRHOEA [None]
  - MANIA [None]
  - PHARMACEUTICAL PRODUCT COMPLAINT [None]
